FAERS Safety Report 7041590-2 (Version None)
Quarter: 2010Q4

REPORT INFORMATION
  Report Type: 
  Country: None (occurrence: None)
  Receive Date: 20101013
  Receipt Date: 20100401
  Transmission Date: 20110411
  Serious: No
  Sender: FDA-Public Use
  Company Number: US-ASTRAZENECA-2009UW03908

PATIENT
  Age: 80 Year
  Sex: Female
  Weight: 58.1 kg

DRUGS (10)
  1. SYMBICORT [Suspect]
     Indication: CHRONIC OBSTRUCTIVE PULMONARY DISEASE
     Dosage: 160/4.5, 2 PUFFS TWICE DAILY
     Route: 055
     Dates: start: 20081101
  2. SYMBICORT [Suspect]
     Indication: EMPHYSEMA
     Dosage: 160/4.5, 2 PUFFS TWICE DAILY
     Route: 055
     Dates: start: 20081101
  3. SYMBICORT [Suspect]
     Dosage: 160/4.5, 2 PUFFS TWICE DAILY
     Route: 055
     Dates: start: 20090101
  4. SYMBICORT [Suspect]
     Dosage: 160/4.5, 2 PUFFS TWICE DAILY
     Route: 055
     Dates: start: 20090101
  5. PLAVIX [Concomitant]
  6. ALBUTEROL [Concomitant]
     Indication: CHRONIC OBSTRUCTIVE PULMONARY DISEASE
  7. THYROID [Concomitant]
     Indication: IODINE UPTAKE INCREASED
  8. PREDNISONE [Concomitant]
     Indication: ARTHRITIS
  9. ADVAIR DISKUS 100/50 [Concomitant]
     Indication: PNEUMONIA
  10. IPRATROPIUM BROMIDE [Concomitant]

REACTIONS (11)
  - ARTHRITIS [None]
  - DRY MOUTH [None]
  - DRY THROAT [None]
  - DYSPHONIA [None]
  - HYPERAESTHESIA [None]
  - INCORRECT DOSE ADMINISTERED [None]
  - NASAL DISCOMFORT [None]
  - OEDEMA PERIPHERAL [None]
  - RASH PAPULAR [None]
  - WEIGHT INCREASED [None]
  - WHEEZING [None]
